FAERS Safety Report 21890748 (Version 1)
Quarter: 2023Q1

REPORT INFORMATION
  Report Type: Report from Study
  Country: PR (occurrence: PR)
  Receive Date: 20230120
  Receipt Date: 20230120
  Transmission Date: 20230417
  Serious: No
  Sender: FDA-Public Use
  Company Number: PR-ABBVIE-4244914

PATIENT
  Sex: Female
  Weight: 73.935 kg

DRUGS (5)
  1. HUMIRA [Suspect]
     Active Substance: ADALIMUMAB
     Indication: Psoriatic arthropathy
     Dosage: 40MG/0.8ML?STOP DATE TEXT: INTERRUPTED
     Route: 058
     Dates: start: 20100824
  2. HUMIRA [Suspect]
     Active Substance: ADALIMUMAB
  3. ELASOMERAN [Concomitant]
     Active Substance: ELASOMERAN
     Indication: COVID-19
     Dosage: 3RD DOSE?START DATE TEXT: UNKNOWN?STOP DATE TEXT: UNKNOWN
     Route: 030
  4. ELASOMERAN [Concomitant]
     Active Substance: ELASOMERAN
     Indication: COVID-19
     Dosage: 2ND DOSE?START DATE TEXT: UNKNOWN?STOP DATE TEXT: UNKNOWN
     Route: 030
  5. ELASOMERAN [Concomitant]
     Active Substance: ELASOMERAN
     Indication: COVID-19
     Dosage: 1ST DOSE?START DATE TEXT: UNKNOWN?STOP DATE TEXT: UNKNOWN
     Route: 030

REACTIONS (3)
  - SARS-CoV-2 test positive [Recovered/Resolved]
  - Decreased appetite [Recovered/Resolved]
  - Pyrexia [Recovered/Resolved]

NARRATIVE: CASE EVENT DATE: 20221201
